FAERS Safety Report 4789846-8 (Version None)
Quarter: 2005Q4

REPORT INFORMATION
  Report Type: 
  Country: None (occurrence: None)
  Receive Date: 20051005
  Receipt Date: 20051005
  Transmission Date: 20060501
  Serious: No
  Sender: FDA-Public Use
  Company Number: None

PATIENT
  Age: 35 Year
  Sex: Female
  Weight: 85 kg

DRUGS (3)
  1. OLANZAPINE [Suspect]
     Indication: SCHIZOAFFECTIVE DISORDER
     Dosage: 5 MG   BID  PO
     Route: 048
     Dates: start: 20050307, end: 20050320
  2. OLANZAPINE [Suspect]
     Indication: AGITATION
     Dosage: 5 MG   Q4H PM  PO
     Route: 048
     Dates: start: 20050307, end: 20050319
  3. OLANZAPINE [Suspect]
     Indication: ANXIETY
     Dosage: 5 MG   Q4H PM  PO
     Route: 048
     Dates: start: 20050307, end: 20050319

REACTIONS (7)
  - ALANINE AMINOTRANSFERASE ABNORMAL [None]
  - ASPARTATE AMINOTRANSFERASE ABNORMAL [None]
  - BLOOD AMYLASE INCREASED [None]
  - BLOOD GLUCOSE INCREASED [None]
  - GASTRITIS [None]
  - IMPAIRED GASTRIC EMPTYING [None]
  - LIPASE INCREASED [None]
